FAERS Safety Report 12894636 (Version 4)
Quarter: 2016Q4

REPORT INFORMATION
  Report Type: Spontaneous
  Country: US (occurrence: US)
  Receive Date: 20161028
  Receipt Date: 20161207
  Transmission Date: 20170207
  Serious: No
  Sender: FDA-Public Use
  Company Number: US-SHIRE-US201615959

PATIENT
  Age: 83 Year
  Sex: Female
  Weight: 72.11 kg

DRUGS (1)
  1. XIIDRA [Suspect]
     Active Substance: LIFITEGRAST
     Indication: EYE INFLAMMATION
     Dosage: UNK, UNKNOWN
     Route: 047
     Dates: start: 20161004

REACTIONS (4)
  - Instillation site pain [Unknown]
  - Incorrect dose administered [Unknown]
  - Product use issue [Unknown]
  - Product quality issue [Unknown]

NARRATIVE: CASE EVENT DATE: 201610
